FAERS Safety Report 6045706-6 (Version None)
Quarter: 2009Q1

REPORT INFORMATION
  Report Type: 
  Country: None (occurrence: None)
  Receive Date: 20090121
  Receipt Date: 20090115
  Transmission Date: 20090719
  Serious: Yes (Other)
  Sender: FDA-Public Use
  Company Number: CA-ASTRAZENECA-2009UW01399

PATIENT
  Age: 63 Year
  Sex: Female
  Weight: 60 kg

DRUGS (4)
  1. NEXIUM [Suspect]
     Route: 048
  2. IMITREX [Concomitant]
  3. SYNTHROID [Concomitant]
  4. ZOMIG [Concomitant]
     Route: 048

REACTIONS (11)
  - ALANINE AMINOTRANSFERASE INCREASED [None]
  - ARTHRALGIA [None]
  - BLOOD UREA INCREASED [None]
  - CONSTIPATION [None]
  - GAIT DISTURBANCE [None]
  - HEPATITIS [None]
  - INSOMNIA [None]
  - MUSCULAR WEAKNESS [None]
  - MYALGIA [None]
  - NERVOUSNESS [None]
  - WEIGHT DECREASED [None]
